FAERS Safety Report 5357766-6 (Version None)
Quarter: 2007Q2

REPORT INFORMATION
  Report Type: 
  Country: None (occurrence: None)
  Receive Date: 20070614
  Receipt Date: 20070604
  Transmission Date: 20071010
  Serious: Yes (Life-Threatening, Disabling)
  Sender: FDA-Public Use
  Company Number: US-ABBOTT-07P-163-0370999-00

PATIENT
  Age: 55 Year
  Sex: Male

DRUGS (1)
  1. OMNICEF [Suspect]
     Indication: SINUSITIS

REACTIONS (6)
  - ARTHRITIS [None]
  - DIABETES MELLITUS [None]
  - INFECTION [None]
  - RASH [None]
  - SKIN LESION [None]
  - VASCULITIS [None]
